FAERS Safety Report 6618080-1 (Version None)
Quarter: 2010Q1

REPORT INFORMATION
  Report Type: 
  Country: None (occurrence: None)
  Receive Date: 20100308
  Receipt Date: 20100302
  Transmission Date: 20100710
  Serious: Yes (Hospitalization)
  Sender: FDA-Public Use
  Company Number: ES-SANOFI-AVENTIS-2010SA011985

PATIENT
  Age: 61 Year
  Sex: Male

DRUGS (1)
  1. TAXOTERE [Suspect]
     Indication: LARYNGEAL CANCER
     Route: 042
     Dates: start: 20090320, end: 20090320

REACTIONS (2)
  - FEBRILE NEUTROPENIA [None]
  - LEUKOCYTOSIS [None]
